FAERS Safety Report 5162031-6 (Version None)
Quarter: 2006Q4

REPORT INFORMATION
  Report Type: 
  Country: None (occurrence: None)
  Receive Date: 20061121
  Receipt Date: 20061110
  Transmission Date: 20070319
  Serious: Yes (Death)
  Sender: FDA-Public Use
  Company Number: ACO_0285_2006

PATIENT
  Sex: Female

DRUGS (1)
  1. SIRDALUD [Suspect]
     Indication: MUSCLE SPASMS
     Dosage: 12 MG QDAY PO
     Route: 048

REACTIONS (3)
  - CEREBRAL HAEMATOMA [None]
  - GASTROINTESTINAL HYPOMOTILITY [None]
  - INTESTINAL OBSTRUCTION [None]
